FAERS Safety Report 14959755 (Version 3)
Quarter: 2018Q3

REPORT INFORMATION
  Report Type: Report from Study
  Country: NL (occurrence: NL)
  Receive Date: 20180531
  Receipt Date: 20180719
  Transmission Date: 20181010
  Serious: Yes (Death, Hospitalization)
  Sender: FDA-Public Use
  Company Number: NL-PFIZER INC-2018218526

PATIENT
  Age: 78 Year
  Sex: Male
  Weight: 82 kg

DRUGS (8)
  1. TOPOTECAN HYDROCHLORIDE. [Suspect]
     Active Substance: TOPOTECAN HYDROCHLORIDE
     Indication: SMALL CELL LUNG CANCER
     Dosage: 1.5 MG/M2, CYCLIC (DAY 1 ? 5 EACH 21DAYS CYCLE)
     Route: 042
     Dates: start: 20170911, end: 20180210
  2. BACLOFEN. [Concomitant]
     Active Substance: BACLOFEN
     Indication: HICCUPS
     Dosage: 5 MG, AS NEEDED
     Route: 048
     Dates: start: 20170915
  3. BINOCRIT [Concomitant]
     Active Substance: ERYTHROPOIETIN
     Indication: ANAEMIA
     Dosage: 1 DF, WEEKLY
     Route: 058
     Dates: start: 20171023
  4. DEXAMETHASONE. [Concomitant]
     Active Substance: DEXAMETHASONE
     Indication: PROPHYLAXIS
     Dosage: UNK
     Route: 042
  5. METOCLOPRAMIDE. [Concomitant]
     Active Substance: METOCLOPRAMIDE
     Indication: PROPHYLAXIS OF NAUSEA AND VOMITING
     Dosage: 40 MG, 1X/DAY
     Route: 048
  6. METOPROLOL. [Concomitant]
     Active Substance: METOPROLOL
     Indication: HYPERTENSION
     Dosage: 50 MG, 2X/DAY
     Route: 048
     Dates: start: 2015
  7. IRBESARTAN + HIDROCLOROTIAZIDA ACTAVIS [Concomitant]
     Indication: HYPERTENSION
     Dosage: 1 DF, 1X/DAY
     Route: 048
     Dates: start: 1987, end: 20180213
  8. METOCLOPRAMIDE. [Concomitant]
     Active Substance: METOCLOPRAMIDE
     Indication: HICCUPS

REACTIONS (5)
  - Body temperature increased [Fatal]
  - Motor dysfunction [Fatal]
  - Febrile neutropenia [Recovered/Resolved]
  - Hyponatraemia [Fatal]
  - Neoplasm progression [Fatal]

NARRATIVE: CASE EVENT DATE: 20180212
